FAERS Safety Report 25773464 (Version 1)
Quarter: 2025Q3

REPORT INFORMATION
  Report Type: Spontaneous
  Country: US (occurrence: None)
  Receive Date: 20250905
  Receipt Date: 20250905
  Transmission Date: 20251020
  Serious: No
  Sender: FDA-CTU
  Company Number: None

PATIENT
  Age: 40 Year
  Sex: Male

DRUGS (1)
  1. RITUXAN [Suspect]
     Active Substance: RITUXIMAB

REACTIONS (5)
  - Infusion related reaction [None]
  - Pain in extremity [None]
  - Headache [None]
  - Chills [None]
  - Chills [None]

NARRATIVE: CASE EVENT DATE: 20250822
